FAERS Safety Report 6521630-7 (Version None)
Quarter: 2009Q4

REPORT INFORMATION
  Report Type: 
  Country: None (occurrence: None)
  Receive Date: 20091230
  Receipt Date: 20091217
  Transmission Date: 20100525
  Serious: Yes (Other)
  Sender: FDA-Public Use
  Company Number: PHHY2009AU56324

PATIENT
  Sex: Male

DRUGS (2)
  1. CLOZARIL [Suspect]
     Indication: SCHIZOPHRENIA
     Dosage: 300 -350 MG
     Route: 048
     Dates: start: 19960101
  2. CLOZARIL [Suspect]
     Dosage: 200 MG
     Route: 048

REACTIONS (3)
  - ANAEMIA [None]
  - ANTIPSYCHOTIC DRUG LEVEL INCREASED [None]
  - RENAL IMPAIRMENT [None]
